FAERS Safety Report 19153164 (Version 1)
Quarter: 2021Q2

REPORT INFORMATION
  Report Type: Spontaneous
  Country: MX (occurrence: MX)
  Receive Date: 20210419
  Receipt Date: 20210419
  Transmission Date: 20210717
  Serious: Yes (Hospitalization, Other)
  Sender: FDA-Public Use
  Company Number: MX-ACCORD-222581

PATIENT
  Age: 51 Year
  Sex: Male

DRUGS (3)
  1. BLEOMYCIN [Suspect]
     Active Substance: BLEOMYCIN SULFATE
     Indication: SEMINOMA
  2. CISPLATIN. [Suspect]
     Active Substance: CISPLATIN
     Indication: SEMINOMA
  3. ETOPOSIDE. [Suspect]
     Active Substance: ETOPOSIDE
     Indication: SEMINOMA

REACTIONS (4)
  - Gastrointestinal haemorrhage [Recovered/Resolved]
  - Epstein-Barr virus infection [Recovered/Resolved]
  - Escherichia infection [Recovered/Resolved]
  - Enterocolitis haemorrhagic [Recovered/Resolved]
